FAERS Safety Report 15368130 (Version 3)
Quarter: 2018Q3

REPORT INFORMATION
  Report Type: Spontaneous
  Country: US (occurrence: US)
  Receive Date: 20180910
  Receipt Date: 20180911
  Transmission Date: 20181010
  Serious: Yes (Hospitalization, Other)
  Sender: FDA-Public Use
  Company Number: US-ENDO PHARMACEUTICALS INC-2018-040969

PATIENT
  Age: 39 Year
  Sex: Male

DRUGS (1)
  1. OPANA [Suspect]
     Active Substance: OXYMORPHONE HYDROCHLORIDE
     Indication: PRODUCT USED FOR UNKNOWN INDICATION
     Dosage: UNK UNKNOWN, UNKNOWN
     Route: 042

REACTIONS (4)
  - Drug abuse [Unknown]
  - Adrenal gland abscess [Recovering/Resolving]
  - Endocarditis [Recovering/Resolving]
  - Nocardiosis [Recovering/Resolving]
